FAERS Safety Report 23241538 (Version 1)
Quarter: 2023Q4

REPORT INFORMATION
  Report Type: Spontaneous
  Country: CN (occurrence: None)
  Receive Date: 20231129
  Receipt Date: 20231129
  Transmission Date: 20240109
  Serious: Yes (Other)
  Sender: FDA-Public Use
  Company Number: 2023A268328

PATIENT
  Age: 64 Year
  Sex: Male
  Weight: 50 kg

DRUGS (1)
  1. OSIMERTINIB MESYLATE [Suspect]
     Active Substance: OSIMERTINIB MESYLATE
     Indication: Targeted cancer therapy
     Route: 048
     Dates: start: 20231101, end: 20231111

REACTIONS (2)
  - Interstitial lung disease [Recovering/Resolving]
  - Pulmonary function test decreased [Unknown]

NARRATIVE: CASE EVENT DATE: 20231112
